FAERS Safety Report 7104902-7 (Version None)
Quarter: 2010Q4

REPORT INFORMATION
  Report Type: 
  Country: None (occurrence: None)
  Receive Date: 20101110
  Receipt Date: 20101026
  Transmission Date: 20110411
  Serious: Yes (Death)
  Sender: FDA-Public Use
  Company Number: UTC-001832

PATIENT
  Sex: Female

DRUGS (8)
  1. REMODULIN [Suspect]
     Dosage: 79.2 UG/KG (0.055 UG/KG, 1 IN 1 MIN), INTRAVENOUS
     Route: 042
     Dates: start: 20090101
  2. TRACLEER [Concomitant]
  3. DESIPRAMINE HCL [Concomitant]
  4. OVCON-35 [Concomitant]
  5. OXYGEN [Concomitant]
  6. PLAQUENIL [Concomitant]
  7. SINGULAIR [Concomitant]
  8. COUMADIN [Concomitant]

REACTIONS (1)
  - DEATH [None]
